FAERS Safety Report 23935809 (Version 1)
Quarter: 2024Q2

REPORT INFORMATION
  Report Type: Spontaneous
  Country: GB (occurrence: GB)
  Receive Date: 20240604
  Receipt Date: 20240604
  Transmission Date: 20240716
  Serious: Yes (Other)
  Sender: FDA-Public Use
  Company Number: None

PATIENT
  Age: 70 Year
  Sex: Male
  Weight: 57 kg

DRUGS (10)
  1. ATORVASTATIN [Suspect]
     Active Substance: ATORVASTATIN
     Route: 065
     Dates: start: 20240125
  2. LANSOPRAZOLE [Concomitant]
     Active Substance: LANSOPRAZOLE
     Dates: start: 20240311
  3. LEVOTHYROXINE [Concomitant]
     Active Substance: LEVOTHYROXINE\LEVOTHYROXINE SODIUM
     Dosage: EVERY MORNING,
     Dates: start: 20240125
  4. ALLOPURINOL [Concomitant]
     Active Substance: ALLOPURINOL
     Dates: start: 20240125
  5. BETAHISTINE [Concomitant]
     Active Substance: BETAHISTINE
     Dosage: TIME INTERVAL: 0.33333333 DAYS
     Dates: start: 20240125
  6. AMOXICILLIN [Concomitant]
     Active Substance: AMOXICILLIN
     Dosage: TIME INTERVAL: 0.33333333 DAYS
     Dates: start: 20240313, end: 20240318
  7. ZOPICLONE [Concomitant]
     Active Substance: ZOPICLONE
     Dosage: AT NIGHT SPARINGLY,
     Dates: start: 20240313, end: 20240410
  8. ASPIRIN [Concomitant]
     Active Substance: ASPIRIN
     Dates: start: 20240125
  9. BISOPROLOL [Concomitant]
     Active Substance: BISOPROLOL\BISOPROLOL FUMARATE
     Dates: start: 20240125
  10. ISOSORBIDE MONONITRATE [Concomitant]
     Active Substance: ISOSORBIDE MONONITRATE
     Dosage: . EACH MORNING,
     Dates: start: 20240125

REACTIONS (1)
  - Drug-induced liver injury [Recovering/Resolving]
